FAERS Safety Report 15022121 (Version 3)
Quarter: 2019Q1

REPORT INFORMATION
  Report Type: Spontaneous
  Country: US (occurrence: US)
  Receive Date: 20180618
  Receipt Date: 20190128
  Transmission Date: 20190417
  Serious: Yes (Other)
  Sender: FDA-Public Use
  Company Number: US-SA-2018SA154776

PATIENT
  Age: 40 Year
  Sex: Female
  Weight: 100 kg

DRUGS (2)
  1. ADRIAMYCIN [Concomitant]
     Active Substance: DOXORUBICIN HYDROCHLORIDE
  2. TAXOTERE [Suspect]
     Active Substance: DOCETAXEL
     Indication: BREAST CANCER
     Dosage: UNK UNK, Q3W
     Route: 042
     Dates: start: 20050915, end: 20050915

REACTIONS (6)
  - Alopecia [Recovering/Resolving]
  - Impaired quality of life [Unknown]
  - Anxiety [Unknown]
  - Pain [Unknown]
  - Emotional distress [Unknown]
  - Psychological trauma [Unknown]

NARRATIVE: CASE EVENT DATE: 20050915
